FAERS Safety Report 7389963-2 (Version None)
Quarter: 2011Q2

REPORT INFORMATION
  Report Type: 
  Country: None (occurrence: None)
  Receive Date: 20110401
  Receipt Date: 20110324
  Transmission Date: 20111010
  Serious: Yes (Other)
  Sender: FDA-Public Use
  Company Number: US-AMGEN-USASP2011015910

PATIENT
  Age: 57 Year
  Sex: Male

DRUGS (2)
  1. ENBREL [Suspect]
     Indication: PSORIASIS
  2. ENBREL [Suspect]
     Indication: RHEUMATOID ARTHRITIS
     Dosage: 25 MG, QWK
     Dates: start: 20050301

REACTIONS (3)
  - PSORIASIS [None]
  - DIABETES MELLITUS [None]
  - INJECTION SITE PAIN [None]
